FAERS Safety Report 8076056-4 (Version None)
Quarter: 2012Q1

REPORT INFORMATION
  Report Type: 
  Country: None (occurrence: None)
  Receive Date: 20120127
  Receipt Date: 20110621
  Transmission Date: 20120608
  Serious: Yes (Hospitalization)
  Sender: FDA-Public Use
  Company Number: US-GLAXOSMITHKLINE-A0932548A

PATIENT
  Age: 55 Year
  Sex: Male

DRUGS (8)
  1. TRAZODONE HCL [Concomitant]
  2. AMBIEN [Concomitant]
  3. WELLBUTRIN [Suspect]
     Indication: DEPRESSION
     Route: 065
     Dates: start: 20110515, end: 20110614
  4. LEXAPRO [Concomitant]
  5. LISINOPRIL [Concomitant]
  6. SIMVASTATIN [Concomitant]
  7. SERTRALINE HYDROCHLORIDE [Concomitant]
     Dates: start: 20050101, end: 20110515
  8. STUDY DRUG [Concomitant]

REACTIONS (3)
  - BIPOLAR I DISORDER [None]
  - MANIA [None]
  - IRRITABILITY [None]
